FAERS Safety Report 24299011 (Version 1)
Quarter: 2024Q3

REPORT INFORMATION
  Report Type: Spontaneous
  Country: CA (occurrence: CA)
  Receive Date: 20240909
  Receipt Date: 20240909
  Transmission Date: 20241017
  Serious: Yes (Life-Threatening)
  Sender: B BRAUN
  Company Number: CA-B.Braun Medical Inc.-2161390

PATIENT
  Age: 71 Year
  Sex: Female

DRUGS (1)
  1. HEPARIN SODIUM IN DEXTROSE [Suspect]
     Active Substance: HEPARIN SODIUM
     Indication: Angioplasty

REACTIONS (5)
  - Bicytopenia [Recovered/Resolved]
  - Shock haemorrhagic [Recovered/Resolved]
  - Overdose [Recovered/Resolved]
  - Hypotension [Recovered/Resolved]
  - Coagulopathy [Recovered/Resolved]
